FAERS Safety Report 11220746 (Version 1)
Quarter: 2015Q2

REPORT INFORMATION
  Report Type: Spontaneous
  Country: US (occurrence: None)
  Receive Date: 20150625
  Receipt Date: 20150625
  Transmission Date: 20150821
  Serious: Yes (Life-Threatening, Hospitalization)
  Sender: FDA-Public Use
  Company Number: None

PATIENT
  Age: 65 Year
  Sex: Male
  Weight: 85 kg

DRUGS (2)
  1. IOPAMIDOL [Suspect]
     Active Substance: IOPAMIDOL
     Indication: CARDIOVASCULAR DISORDER
     Route: 042
     Dates: start: 20150421, end: 20150421
  2. IOPAMIDOL [Suspect]
     Active Substance: IOPAMIDOL
     Indication: SURGERY
     Route: 042
     Dates: start: 20150421, end: 20150421

REACTIONS (3)
  - Hypotension [None]
  - Chills [None]
  - Contrast media reaction [None]

NARRATIVE: CASE EVENT DATE: 20150421
